FAERS Safety Report 5472447-6 (Version None)
Quarter: 2007Q3

REPORT INFORMATION
  Report Type: 
  Country: None (occurrence: None)
  Receive Date: 20070926
  Receipt Date: 20070911
  Transmission Date: 20080115
  Serious: Yes (Life-Threatening, Hospitalization, Other)
  Sender: FDA-Public Use
  Company Number: 2007RR-09939

PATIENT
  Age: 73 Year
  Sex: Female
  Weight: 70 kg

DRUGS (13)
  1. METFORMIN 500MG TABLETS (METFORMIN HYDROCHLORIDE) [Suspect]
     Dosage: 500 MG, TID, ORAL
     Route: 048
     Dates: start: 19960119, end: 20070829
  2. ENALAPRIL MALEATE [Suspect]
     Dosage: 40 MG, QD, ORAL
     Route: 048
     Dates: start: 19970821, end: 20070829
  3. AMITRIPTYLINE HCL [Concomitant]
  4. DIPERSIBLE ASPIRIN (ASPIRIN) [Concomitant]
  5. ATENOLOL [Concomitant]
  6. DOXAZOSIN MESYLATE [Concomitant]
  7. IBUPROFEN [Concomitant]
  8. LEVOTHYROXINE SODIUM [Concomitant]
  9. PARACETAMOL (ACETAMINOPHEN/PARACETAMOL) [Concomitant]
  10. QUININE SULPHATE (QUININE) [Concomitant]
  11. SIMVASTATIN [Concomitant]
  12. TRAMADOL HYDROCHLORIDE (TRAMADOL) [Concomitant]
  13. TRIMETHOPRIM [Concomitant]

REACTIONS (6)
  - ELECTROCARDIOGRAM P WAVE ABNORMAL [None]
  - ELECTROCARDIOGRAM PR PROLONGATION [None]
  - FATIGUE [None]
  - HYPERKALAEMIA [None]
  - METABOLIC ACIDOSIS [None]
  - URINARY TRACT INFECTION [None]
